FAERS Safety Report 5811011-3 (Version None)
Quarter: 2008Q3

REPORT INFORMATION
  Report Type: 
  Country: None (occurrence: None)
  Receive Date: 20080716
  Receipt Date: 20080714
  Transmission Date: 20090109
  Serious: Yes (Hospitalization, Other)
  Sender: FDA-Public Use
  Company Number: US-BAYER-200713667BCC

PATIENT
  Age: 48 Year
  Sex: Female
  Weight: 82 kg

DRUGS (5)
  1. ALEVE (CAPLET) [Suspect]
     Indication: ARTHRALGIA
     Dosage: UNIT DOSE: 220 MG
     Route: 048
     Dates: start: 20071001
  2. MULTI-VITAMINS [Concomitant]
  3. PRIMERIN [Concomitant]
  4. VITAMIN B-12 [Concomitant]
  5. VITAMIN B1 TAB [Concomitant]

REACTIONS (3)
  - GASTRITIS EROSIVE [None]
  - GASTROINTESTINAL HAEMORRHAGE [None]
  - HAEMATOCHEZIA [None]
